FAERS Safety Report 9839052 (Version 1)
Quarter: 2014Q1

REPORT INFORMATION
  Report Type: Spontaneous
  Country: JP (occurrence: JP)
  Receive Date: 20140123
  Receipt Date: 20140123
  Transmission Date: 20141002
  Serious: Yes (Death)
  Sender: FDA-Public Use
  Company Number: PHHY2014JP004338

PATIENT
  Age: 51 Year
  Sex: Female

DRUGS (2)
  1. IDARUBICIN [Suspect]
     Indication: CHEMOTHERAPY
  2. CYTARABINE [Suspect]
     Indication: CHEMOTHERAPY

REACTIONS (2)
  - Death [Fatal]
  - Drug effect incomplete [Unknown]
